FAERS Safety Report 7436931-8 (Version None)
Quarter: 2011Q2

REPORT INFORMATION
  Report Type: 
  Country: None (occurrence: None)
  Receive Date: 20110426
  Receipt Date: 20110412
  Transmission Date: 20111010
  Serious: Yes (Life-Threatening)
  Sender: FDA-Public Use
  Company Number: AU-TYCO HEALTHCARE/MALLINCKRODT-T201100547

PATIENT
  Sex: Female
  Weight: 60 kg

DRUGS (3)
  1. OPIOIDS [Suspect]
     Dosage: UNK
  2. EXALGO [Suspect]
     Indication: PRODUCT USED FOR UNKNOWN INDICATION
     Dosage: UNK
     Dates: start: 20110201
  3. METHADOSE [Suspect]
     Indication: DRUG DEPENDENCE
     Dosage: UNK

REACTIONS (3)
  - DRUG DIVERSION [None]
  - DRUG LEVEL INCREASED [None]
  - DRUG ABUSE [None]
